FAERS Safety Report 10158515 (Version 1)
Quarter: 2014Q2

REPORT INFORMATION
  Report Type: Report from Study
  Country: US (occurrence: US)
  Receive Date: 20140507
  Receipt Date: 20140507
  Transmission Date: 20141212
  Serious: Yes (Death)
  Sender: FDA-Public Use
  Company Number: PHEH2014US009170

PATIENT
  Age: 28 Year
  Sex: Female

DRUGS (1)
  1. TOBI [Suspect]
     Indication: CYSTIC FIBROSIS
     Dosage: 300MG/5ML, BID

REACTIONS (1)
  - Death [Fatal]
